FAERS Safety Report 16860421 (Version 3)
Quarter: 2023Q4

REPORT INFORMATION
  Report Type: Spontaneous
  Country: US (occurrence: US)
  Receive Date: 20190927
  Receipt Date: 20231011
  Transmission Date: 20240110
  Serious: No
  Sender: FDA-Public Use
  Company Number: US-GILEAD-2019-0429722

PATIENT
  Age: 37 Year
  Sex: Male
  Weight: 86.168 kg

DRUGS (46)
  1. TRUVADA [Suspect]
     Active Substance: EMTRICITABINE\TENOFOVIR DISOPROXIL FUMARATE
     Indication: HIV infection
     Dosage: UNK
     Route: 048
     Dates: start: 20090819, end: 20120919
  2. STRIBILD [Suspect]
     Active Substance: COBICISTAT\ELVITEGRAVIR\EMTRICITABINE\TENOFOVIR DISOPROXIL FUMARATE
     Indication: HIV infection
     Dosage: UNK
     Route: 048
     Dates: start: 20161106, end: 2018
  3. STRIBILD [Suspect]
     Active Substance: COBICISTAT\ELVITEGRAVIR\EMTRICITABINE\TENOFOVIR DISOPROXIL FUMARATE
     Dosage: UNK
     Route: 048
     Dates: start: 20121106, end: 20151120
  4. GENVOYA [Concomitant]
     Active Substance: COBICISTAT\ELVITEGRAVIR\EMTRICITABINE\TENOFOVIR ALAFENAMIDE FUMARATE
  5. ISENTRESS [Concomitant]
     Active Substance: RALTEGRAVIR POTASSIUM
  6. JULUCA [Concomitant]
     Active Substance: DOLUTEGRAVIR SODIUM\RILPIVIRINE HYDROCHLORIDE
  7. SELZENTRY [Concomitant]
     Active Substance: MARAVIROC
  8. SUSTIVA [Concomitant]
     Active Substance: EFAVIRENZ
  9. NORCO [Concomitant]
     Active Substance: ACETAMINOPHEN\HYDROCODONE BITARTRATE
  10. BACLOFEN [Concomitant]
     Active Substance: BACLOFEN
  11. TOPAMAX [Concomitant]
     Active Substance: TOPIRAMATE
  12. AMOXICILLIN\CLAVULANATE POTASSIUM [Concomitant]
     Active Substance: AMOXICILLIN\CLAVULANATE POTASSIUM
  13. AVELOX [Concomitant]
     Active Substance: MOXIFLOXACIN HYDROCHLORIDE
  14. BUPROPION HYDROCHLORIDE [Concomitant]
     Active Substance: BUPROPION HYDROCHLORIDE
  15. CETIRIZINE [Concomitant]
     Active Substance: CETIRIZINE HYDROCHLORIDE
  16. CIPROFLOXACIN [Concomitant]
     Active Substance: CIPROFLOXACIN
  17. CYANOCOBALAMIN [Concomitant]
     Active Substance: CYANOCOBALAMIN
  18. DEXTROAMPHETAMINE [Concomitant]
     Active Substance: DEXTROAMPHETAMINE
  19. DOXYCYCLINE [Concomitant]
     Active Substance: DOXYCYCLINE
  20. DRONABINOL [Concomitant]
     Active Substance: DRONABINOL
  21. ESCITALOPRAM [Concomitant]
     Active Substance: ESCITALOPRAM OXALATE
  22. FLUCONAZOLE [Concomitant]
     Active Substance: FLUCONAZOLE
  23. GABAPENTIN [Concomitant]
     Active Substance: GABAPENTIN
  24. KETOCONAZOLE [Concomitant]
     Active Substance: KETOCONAZOLE
  25. LEVAQUIN [Concomitant]
     Active Substance: LEVOFLOXACIN
  26. LORATADINE [Concomitant]
     Active Substance: LORATADINE
  27. M NATAL PLUS [Concomitant]
  28. MUPIROCIN [Concomitant]
     Active Substance: MUPIROCIN
  29. NAPROXEN [Concomitant]
     Active Substance: NAPROXEN
  30. NORDITROPIN [Concomitant]
     Active Substance: SOMATROPIN
  31. NYSTATIN [Concomitant]
     Active Substance: NYSTATIN
  32. OMEPRAZOLE [Concomitant]
     Active Substance: OMEPRAZOLE
  33. OXANDROLONE [Concomitant]
     Active Substance: OXANDROLONE
  34. PENICILLIN [Concomitant]
     Active Substance: PENICILLIN
  35. PERMETHRIN [Concomitant]
     Active Substance: PERMETHRIN
  36. PREDNISONE [Concomitant]
     Active Substance: PREDNISONE
  37. PROAIR HFA [Concomitant]
     Active Substance: ALBUTEROL SULFATE
  38. TESTOSTERONE [Concomitant]
     Active Substance: TESTOSTERONE
  39. SEROSTIM [Concomitant]
     Active Substance: SOMATROPIN
  40. SULFAMETHOXAZOLE [Concomitant]
     Active Substance: SULFAMETHOXAZOLE
  41. SUMATRIPTAN [Concomitant]
     Active Substance: SUMATRIPTAN
  42. TIZANIDINE HYDROCHLORIDE [Concomitant]
     Active Substance: TIZANIDINE HYDROCHLORIDE
  43. TRIAMCINOLONE [Concomitant]
     Active Substance: TRIAMCINOLONE
  44. VALACYCLOVIR [Concomitant]
     Active Substance: VALACYCLOVIR HYDROCHLORIDE
  45. VENTOLIN [Concomitant]
     Active Substance: ALBUTEROL SULFATE
  46. ZOLPIDEM TARTRATE [Concomitant]
     Active Substance: ZOLPIDEM TARTRATE

REACTIONS (15)
  - Osteopenia [Not Recovered/Not Resolved]
  - Emotional distress [Not Recovered/Not Resolved]
  - Anxiety [Not Recovered/Not Resolved]
  - Loss of personal independence in daily activities [Not Recovered/Not Resolved]
  - Quality of life decreased [Not Recovered/Not Resolved]
  - Decreased activity [Not Recovered/Not Resolved]
  - Fear [Not Recovered/Not Resolved]
  - Joint noise [Not Recovered/Not Resolved]
  - Back pain [Not Recovered/Not Resolved]
  - Pain [Not Recovered/Not Resolved]
  - Anhedonia [Not Recovered/Not Resolved]
  - Economic problem [Not Recovered/Not Resolved]
  - Blood urine present [Recovered/Resolved]
  - Depression [Not Recovered/Not Resolved]
  - Bone density decreased [Not Recovered/Not Resolved]

NARRATIVE: CASE EVENT DATE: 20110101
